FAERS Safety Report 8164590-8 (Version None)
Quarter: 2012Q1

REPORT INFORMATION
  Report Type: 
  Country: None (occurrence: None)
  Receive Date: 20120227
  Receipt Date: 20120213
  Transmission Date: 20120608
  Serious: Yes (Other)
  Sender: FDA-Public Use
  Company Number: CI-ACCORD-012511

PATIENT

DRUGS (1)
  1. SIMVASTATIN [Suspect]

REACTIONS (1)
  - CHYLOTHORAX [None]
